FAERS Safety Report 6236434-2 (Version None)
Quarter: 2009Q2

REPORT INFORMATION
  Report Type: 
  Country: None (occurrence: None)
  Receive Date: 20090619
  Receipt Date: 20090615
  Transmission Date: 20091009
  Serious: No
  Sender: FDA-Public Use
  Company Number: US-B.I. PHARMACEUTICALS,INC./RIDGEFIELD-2009-BP-07342BP

PATIENT
  Sex: Female

DRUGS (2)
  1. ZANTAC [Suspect]
     Indication: PROPHYLAXIS
     Dosage: 150MG
     Route: 048
     Dates: start: 20090614, end: 20090614
  2. DAYPRO [Concomitant]
     Indication: ARTHRITIS

REACTIONS (1)
  - ABDOMINAL DISCOMFORT [None]
